FAERS Safety Report 10654269 (Version 1)
Quarter: 2014Q4

REPORT INFORMATION
  Report Type: Spontaneous
  Country: US (occurrence: US)
  Receive Date: 20141216
  Receipt Date: 20141216
  Transmission Date: 20150529
  Serious: Yes (Death, Hospitalization, Other)
  Sender: FDA-Public Use
  Company Number: US-SHIRE-US201408691

PATIENT
  Age: 31 Year
  Sex: Male

DRUGS (2)
  1. WELLBUTRIN [Suspect]
     Active Substance: BUPROPION HYDROCHLORIDE
     Indication: PRODUCT USED FOR UNKNOWN INDICATION
     Dosage: UNK, UNKNOWN
     Route: 065
     Dates: start: 2014
  2. VYVANSE [Suspect]
     Active Substance: LISDEXAMFETAMINE DIMESYLATE
     Indication: ATTENTION DEFICIT/HYPERACTIVITY DISORDER
     Dosage: UNK, UNKNOWN
     Route: 065
     Dates: start: 2014

REACTIONS (10)
  - Violence-related symptom [Unknown]
  - Panic attack [Unknown]
  - Physical assault [Recovered/Resolved]
  - Paranoia [Unknown]
  - Abnormal behaviour [Unknown]
  - Insomnia [Unknown]
  - Hallucination, auditory [Unknown]
  - Gun shot wound [Fatal]
  - Mental disorder [Unknown]
  - Persecutory delusion [Unknown]

NARRATIVE: CASE EVENT DATE: 2014
